FAERS Safety Report 9874107 (Version 2)
Quarter: 2014Q1

REPORT INFORMATION
  Report Type: Other
  Country: US (occurrence: US)
  Receive Date: 20140206
  Receipt Date: 20140206
  Transmission Date: 20141002
  Serious: No
  Sender: FDA-Public Use
  Company Number: US-ACORDA-ACO_34056_2013

PATIENT
  Age: 36 Year
  Sex: Female

DRUGS (7)
  1. AMPYRA [Suspect]
     Indication: GAIT DISTURBANCE
     Dosage: 10 MG, BID
     Route: 048
     Dates: start: 20121207
  2. AMPYRA [Suspect]
     Indication: FATIGUE
     Dosage: 10 MG, QD AM
     Route: 048
     Dates: start: 20130123
  3. AMPYRA [Suspect]
     Indication: MULTIPLE SCLEROSIS
  4. BACLOFEN [Suspect]
     Indication: MUSCLE SPASTICITY
     Dosage: 10 MG, BID
     Route: 048
  5. FLUOXETINE [Concomitant]
     Indication: DEPRESSION
     Dosage: 40 MG, QD
     Route: 048
  6. SENNA [Concomitant]
     Indication: CONSTIPATION
     Dosage: 8.6 MG, PRN
     Route: 048
  7. VITAMIN B12 [Concomitant]
     Indication: VITAMIN B12 DEFICIENCY
     Dosage: 1000 ?G, MONTHLY
     Route: 030

REACTIONS (3)
  - Vomiting [Unknown]
  - Nausea [Recovered/Resolved]
  - Drug dose omission [Unknown]
